FAERS Safety Report 5182676-7 (Version None)
Quarter: 2006Q4

REPORT INFORMATION
  Report Type: 
  Country: None (occurrence: None)
  Receive Date: 20061212
  Receipt Date: 20061127
  Transmission Date: 20070319
  Serious: Yes (Other)
  Sender: FDA-Public Use
  Company Number: 2006S1008366

PATIENT
  Age: 68 Year
  Sex: Female
  Weight: 72.5755 kg

DRUGS (13)
  1. FENTANYL TRANSDERMAL SYSTEM [Suspect]
     Indication: BACK PAIN
     Dosage: 100 UG/HR; Q3D; TDER
     Route: 062
     Dates: start: 20050801
  2. PROMETHAZINE (CON.) [Concomitant]
  3. PLETAL (CON.) [Concomitant]
  4. CLONAZEPAM (CON.) [Concomitant]
  5. LANTUS (CON.) [Concomitant]
  6. NITROGLYCERIN (CON.) [Concomitant]
  7. TOPROL (CON.) [Concomitant]
  8. LIPITOR (CON.) [Concomitant]
  9. PLAVIX [Concomitant]
  10. FLONASE [Concomitant]
  11. IMDUR (CON.) [Concomitant]
  12. DIOVAN /01319601/ (CON.) [Concomitant]
  13. GABAPENTIN (CON.) [Concomitant]

REACTIONS (7)
  - BACK PAIN [None]
  - DEVICE FAILURE [None]
  - INADEQUATE ANALGESIA [None]
  - NAUSEA [None]
  - PAIN IN JAW [None]
  - PHARMACEUTICAL PRODUCT COMPLAINT [None]
  - VOMITING [None]
